FAERS Safety Report 19405125 (Version 1)
Quarter: 2021Q2

REPORT INFORMATION
  Report Type: Spontaneous
  Country: US (occurrence: US)
  Receive Date: 20210611
  Receipt Date: 20210611
  Transmission Date: 20210717
  Serious: Yes (Death)
  Sender: FDA-Public Use
  Company Number: None

PATIENT
  Age: 72 Year
  Sex: Male

DRUGS (6)
  1. XALKORI [Suspect]
     Active Substance: CRIZOTINIB
     Indication: LUNG NEOPLASM MALIGNANT
     Route: 048
     Dates: start: 20200204, end: 20210520
  2. DEXAMETHASON [Concomitant]
     Active Substance: DEXAMETHASONE
  3. FOLIC ACID. [Concomitant]
     Active Substance: FOLIC ACID
  4. MORPHINE SUL [Concomitant]
     Active Substance: MORPHINE SULFATE
  5. HYDROCORT (HYDROCORTISONE) [Concomitant]
     Active Substance: HYDROCORTISONE
  6. POT CL MICRO [Concomitant]

REACTIONS (1)
  - Death [None]

NARRATIVE: CASE EVENT DATE: 20210520
